FAERS Safety Report 12372509 (Version 1)
Quarter: 2016Q2

REPORT INFORMATION
  Report Type: Spontaneous
  Country: US (occurrence: US)
  Receive Date: 20160516
  Receipt Date: 20160516
  Transmission Date: 20160815
  Serious: Yes (Hospitalization)
  Sender: FDA-Public Use
  Company Number: US-RARE DISEASE THERAPEUTICS, INC.-1052240

PATIENT
  Age: 27 Year
  Sex: Female
  Weight: 144.2 kg

DRUGS (26)
  1. CYSTADANE [Suspect]
     Active Substance: BETAINE
     Indication: CYSTATHIONINE BETA-SYNTHASE DEFICIENCY
     Route: 048
     Dates: start: 20150619
  2. GLIPIZIDE. [Concomitant]
     Active Substance: GLIPIZIDE
  3. PROAIR HFA [Concomitant]
     Active Substance: ALBUTEROL SULFATE
  4. BACTROBAN [Concomitant]
     Active Substance: MUPIROCIN\MUPIROCIN CALCIUM
  5. METANX [Concomitant]
     Active Substance: LEVOMEFOLATE CALCIUM\METHYLCOBALAMIN\PYRIDOXAL PHOSPHATE ANHYDROUS
  6. FLUNISOLIDE. [Concomitant]
     Active Substance: FLUNISOLIDE
  7. NAPROXEN. [Concomitant]
     Active Substance: NAPROXEN
  8. PAROXETINE. [Concomitant]
     Active Substance: PAROXETINE
  9. CALCIUM [Concomitant]
     Active Substance: CALCIUM
  10. PREDNISONE. [Concomitant]
     Active Substance: PREDNISONE
  11. LISINOPRIL. [Concomitant]
     Active Substance: LISINOPRIL
  12. OMEPRAZOLE. [Concomitant]
     Active Substance: OMEPRAZOLE
  13. FOLIC ACID. [Concomitant]
     Active Substance: FOLIC ACID
  14. CLINDAMYCIN [Concomitant]
     Active Substance: CLINDAMYCIN\CLINDAMYCIN PHOSPHATE
  15. PROPANOLOL [Concomitant]
     Active Substance: PROPRANOLOL HYDROCHLORIDE
  16. MUCINEX [Concomitant]
     Active Substance: GUAIFENESIN
  17. LORAZEPAM. [Concomitant]
     Active Substance: LORAZEPAM
  18. SPIRIVA RESPIMAT [Concomitant]
     Active Substance: TIOTROPIUM BROMIDE
  19. ATROVENT HFA [Concomitant]
     Active Substance: IPRATROPIUM BROMIDE
  20. DOXYCYCLINE. [Concomitant]
     Active Substance: DOXYCYCLINE
  21. TRIAMCINOLONE [Concomitant]
     Active Substance: TRIAMCINOLONE
  22. SYMBICORT [Concomitant]
     Active Substance: BUDESONIDE\FORMOTEROL FUMARATE DIHYDRATE
  23. VITAMIN D3DIETARY SUPPLEMEN DIETARY SUPPLEMENT [Concomitant]
     Active Substance: ALPHA-TOCOPHEROL\CHOLECALCIFEROL
  24. VERAPAMIL [Concomitant]
     Active Substance: VERAPAMIL HYDROCHLORIDE
  25. LOTRIMIN AF ANTIFUNGAL [Concomitant]
     Active Substance: MICONAZOLE NITRATE
  26. ASPIRIN. [Concomitant]
     Active Substance: ASPIRIN

REACTIONS (4)
  - Blood sodium decreased [Unknown]
  - Prescribed overdose [Unknown]
  - Cyst [Unknown]
  - Anxiety [Unknown]

NARRATIVE: CASE EVENT DATE: 20150619
